FAERS Safety Report 8737914 (Version 3)
Quarter: 2013Q4

REPORT INFORMATION
  Report Type: Spontaneous
  Country: US (occurrence: US)
  Receive Date: 20120823
  Receipt Date: 20131108
  Transmission Date: 20140711
  Serious: Yes (Hospitalization)
  Sender: FDA-Public Use
  Company Number: US-009507513-1208USA006209

PATIENT
  Age: 19 Month
  Sex: Male
  Weight: 11.6 kg

DRUGS (13)
  1. NOXAFIL [Suspect]
     Indication: ZYGOMYCOSIS
     Dosage: 200 MG, Q4H
     Route: 050
  2. NOXAFIL [Interacting]
     Dosage: 120-300 MG/KG/DAY
     Route: 050
  3. NOXAFIL [Interacting]
     Dosage: 3000 MG/KG/DAY
     Route: 050
  4. NOXAFIL [Interacting]
     Dosage: 1500 MG QD
     Route: 050
  5. FAMOTIDINE [Interacting]
  6. PANTOPRAZOLE [Interacting]
  7. SUCRALFATE [Interacting]
  8. MICAFUNGIN [Concomitant]
     Indication: PROPHYLAXIS
     Dosage: UNK
  9. AMPHOTERICIN B (+) L-(ALPHA)-DIMYRISTOYLPHOSPHATIDYLCHOLINE (+) L-(ALP [Concomitant]
     Dosage: UNK
  10. AMPHOTERICIN B (+) L-(ALPHA)-DIMYRISTOYLPHOSPHATIDYLCHOLINE (+) L-(ALP [Concomitant]
     Dosage: UNK
  11. AMPHOTERICIN B (+) L-(ALPHA)-DIMYRISTOYLPHOSPHATIDYLCHOLINE (+) L-(ALP [Concomitant]
     Dosage: UNK
  12. AMPHOTERICIN B (+) L-(ALPHA)-DIMYRISTOYLPHOSPHATIDYLCHOLINE (+) L-(ALP [Concomitant]
     Dosage: UNK
  13. AMPHOTERICIN B (+) CHOLESTEROL (+) DISTEAROYLPHOSPHATIDYLGLYCEROL (+) [Concomitant]
     Dosage: UNK

REACTIONS (3)
  - Malabsorption [Unknown]
  - Prescribed overdose [Unknown]
  - Drug interaction [Unknown]
